FAERS Safety Report 5401951-1 (Version None)
Quarter: 2007Q3

REPORT INFORMATION
  Report Type: 
  Country: None (occurrence: None)
  Receive Date: 20070731
  Receipt Date: 20070726
  Transmission Date: 20080115
  Serious: Yes (Other)
  Sender: FDA-Public Use
  Company Number: JP-MERCK-0706USA05379

PATIENT
  Age: 34 Year
  Sex: Male

DRUGS (4)
  1. PROPECIA [Suspect]
     Indication: ALOPECIA
     Route: 048
     Dates: start: 20060805
  2. NARCARICIN [Concomitant]
     Route: 048
     Dates: start: 20061226
  3. URALYT [Suspect]
     Route: 048
     Dates: start: 20061226, end: 20070530
  4. ALLOPURINOL [Concomitant]
     Route: 048
     Dates: start: 20070627

REACTIONS (1)
  - PLATELET COUNT DECREASED [None]
